FAERS Safety Report 4366929-8 (Version None)
Quarter: 2004Q2

REPORT INFORMATION
  Report Type: 
  Country: None (occurrence: None)
  Receive Date: 20040527
  Receipt Date: 20040527
  Transmission Date: 20050107
  Serious: Yes (Other)
  Sender: FDA-Public Use
  Company Number: None

PATIENT
  Sex: Male
  Weight: 79.3795 kg

DRUGS (4)
  1. OXYCODONE ER 80 MG TEVA [Suspect]
     Indication: PERIARTHRITIS
     Dosage: 80 MG QID ORAL
     Route: 048
     Dates: start: 20040513, end: 20040518
  2. OXYCODONE ER 80 MG TEVA [Suspect]
     Indication: ROTATOR CUFF SYNDROME
     Dosage: 80 MG QID ORAL
     Route: 048
     Dates: start: 20040513, end: 20040518
  3. EFFEXOR XR [Concomitant]
  4. XANAX [Concomitant]

REACTIONS (3)
  - NAUSEA [None]
  - PHARMACEUTICAL PRODUCT COMPLAINT [None]
  - VOMITING [None]
